FAERS Safety Report 10685175 (Version 1)
Quarter: 2014Q4

REPORT INFORMATION
  Report Type: Spontaneous
  Country: US (occurrence: None)
  Receive Date: 20141229
  Receipt Date: 20141229
  Transmission Date: 20150529
  Serious: Yes (Death)
  Sender: FDA-Public Use
  Company Number: INS201412-000330

PATIENT
  Age: 57 Year
  Sex: Male

DRUGS (7)
  1. PROMETHAZINE [Concomitant]
     Active Substance: PROMETHAZINE\PROMETHAZINE HYDROCHLORIDE
  2. SENOKOT-S (SENNOSIDES/DOCUSATE) (TABLETS) [Concomitant]
  3. FLONASE (FLUTICASONE) [Concomitant]
  4. MARINOL (DRONABINOL) (CAPSULES) (DRONABINOL) [Concomitant]
  5. VIAGRA (SILDENAFIL) (TABLETS) (SILDENAFIL) [Concomitant]
  6. SUBSYS [Suspect]
     Active Substance: FENTANYL
     Indication: BREAKTHROUGH PAIN
     Dosage: (200 MCG,FOUR TIMES A DAY TO SIX TIMES A DAY)
  7. DILAUDID (HYDROMORPHONE) (TABLETS) [Concomitant]

REACTIONS (2)
  - Colorectal cancer metastatic [None]
  - Prostate cancer metastatic [None]
